FAERS Safety Report 13669623 (Version 1)
Quarter: 2017Q2

REPORT INFORMATION
  Report Type: Spontaneous
  Country: AR (occurrence: AR)
  Receive Date: 20170620
  Receipt Date: 20170620
  Transmission Date: 20170830
  Serious: Yes (Death, Other)
  Sender: FDA-Public Use
  Company Number: AR-AMGEN-ARGSP2017092254

PATIENT
  Age: 69 Year
  Sex: Female

DRUGS (1)
  1. ENBREL [Suspect]
     Active Substance: ETANERCEPT
     Indication: PSORIASIS
     Dosage: 50 MG, WEEKLY
     Route: 065
     Dates: start: 20160610

REACTIONS (5)
  - Hypersensitivity [Unknown]
  - Condition aggravated [Unknown]
  - Death [Fatal]
  - Urinary tract infection [Unknown]
  - Thermal burn [Unknown]

NARRATIVE: CASE EVENT DATE: 201706
